FAERS Safety Report 10384870 (Version 1)
Quarter: 2014Q3

REPORT INFORMATION
  Report Type: Spontaneous
  Country: US (occurrence: None)
  Receive Date: 20140813
  Receipt Date: 20140813
  Transmission Date: 20150326
  Serious: Yes (Other)
  Sender: FDA-Public Use
  Company Number: None

PATIENT
  Age: 46 Year
  Sex: Male
  Weight: 107.5 kg

DRUGS (1)
  1. METHIMAZOLE. [Suspect]
     Active Substance: METHIMAZOLE
     Indication: BASEDOW^S DISEASE
     Dosage: 10 MG TAB DAILY
     Route: 048

REACTIONS (9)
  - Tooth erosion [None]
  - Quality of life decreased [None]
  - Systemic candida [None]
  - Lupus-like syndrome [None]
  - Weight increased [None]
  - Abdominal distension [None]
  - Mood swings [None]
  - Anxiety [None]
  - Abdominal hernia [None]

NARRATIVE: CASE EVENT DATE: 20120815
